FAERS Safety Report 9278778 (Version 1)
Quarter: 2013Q2

REPORT INFORMATION
  Report Type: Spontaneous
  Country: AT (occurrence: AT)
  Receive Date: 20130508
  Receipt Date: 20130508
  Transmission Date: 20140414
  Serious: Yes (Other)
  Sender: FDA-Public Use
  Company Number: AT-ASTRAZENECA-2013SE30114

PATIENT
  Age: 52 Year
  Sex: Male
  Weight: 71 kg

DRUGS (1)
  1. VIMOVO [Suspect]
     Indication: CERVICOBRACHIAL SYNDROME
     Dosage: 500 MG/20 MG 2 DF 1-0-1 DAILY
     Route: 048
     Dates: start: 20130408, end: 20130410

REACTIONS (3)
  - Keratitis [Recovering/Resolving]
  - Diarrhoea [Recovering/Resolving]
  - Gastrointestinal pain [Recovering/Resolving]
